FAERS Safety Report 23462671 (Version 1)
Quarter: 2024Q1

REPORT INFORMATION
  Report Type: Spontaneous
  Country: US (occurrence: None)
  Receive Date: 20240131
  Receipt Date: 20240131
  Transmission Date: 20240410
  Serious: Yes (Hospitalization)
  Sender: FDA-Public Use
  Company Number: None

PATIENT
  Age: 32 Year
  Sex: Male

DRUGS (1)
  1. GENOTROPIN [Suspect]
     Active Substance: SOMATROPIN
     Indication: Product used for unknown indication
     Dosage: FREQUENCY : DAILY;?

REACTIONS (3)
  - Blood sodium decreased [None]
  - Dehydration [None]
  - Therapy interrupted [None]

NARRATIVE: CASE EVENT DATE: 20240130
